FAERS Safety Report 5160895-3 (Version None)
Quarter: 2006Q4

REPORT INFORMATION
  Report Type: 
  Country: None (occurrence: None)
  Receive Date: 20061130
  Receipt Date: 20061115
  Transmission Date: 20070319
  Serious: Yes (Hospitalization)
  Sender: FDA-Public Use
  Company Number: US-JNJFOC-20061105771

PATIENT
  Age: 13 Month
  Sex: Female
  Weight: 9.7 kg

DRUGS (3)
  1. TYLENOL (CAPLET) [Suspect]
     Indication: PYREXIA
  2. TYLENOL (CAPLET) [Suspect]
     Indication: EAR INFECTION
     Dosage: 1000-1500MG IN ONE DAY, FOLLOWED BY 500 MG, 2 IN 1 DAY (THE SECOND DAY)
  3. CONCENTRATED MOTRIN INFANTS' [Concomitant]

REACTIONS (2)
  - HEPATIC FUNCTION ABNORMAL [None]
  - OVERDOSE [None]
